FAERS Safety Report 9045888 (Version 1)
Quarter: 2013Q1

REPORT INFORMATION
  Report Type: Report from Study
  Country: US (occurrence: US)
  Receive Date: 20130201
  Receipt Date: 20130201
  Transmission Date: 20140127
  Serious: No
  Sender: FDA-Public Use
  Company Number: US-ABBOTT-12P-163-1023525-00

PATIENT
  Age: 61 Year
  Sex: Female

DRUGS (10)
  1. HUMIRA [Suspect]
     Indication: COLITIS ULCERATIVE
     Dates: start: 20121212, end: 20121212
  2. HUMIRA [Suspect]
     Dates: start: 20121213
  3. PRAVASTATIN [Concomitant]
     Indication: BLOOD CHOLESTEROL
     Dosage: AT NIGHT
  4. PREDNISONE [Concomitant]
     Indication: PRODUCT USED FOR UNKNOWN INDICATION
     Dosage: 20MG (2) DAILY
  5. METOPROLOL [Concomitant]
     Indication: BLOOD PRESSURE
     Dosage: DAILY
  6. GLIMEPIRIDE [Concomitant]
     Indication: DIABETES MELLITUS
     Dosage: AMARYL GENERIC DAILY
  7. OMEPRAZOLE [Concomitant]
     Indication: CHEST PAIN
  8. LOSARTAN HCTZ [Concomitant]
     Indication: BLOOD PRESSURE
     Dosage: 100/25MG, 1 TABLET DAILY
  9. GENERIC ZOFRAN [Concomitant]
     Indication: NAUSEA
  10. APRISO [Concomitant]
     Indication: PRODUCT USED FOR UNKNOWN INDICATION
     Dosage: 0.375 GM (2) IN MORNING AND (2) IN EVENING

REACTIONS (2)
  - Injection site pain [Not Recovered/Not Resolved]
  - Rhinorrhoea [Not Recovered/Not Resolved]
